FAERS Safety Report 6886266-7 (Version None)
Quarter: 2010Q3

REPORT INFORMATION
  Report Type: 
  Country: None (occurrence: None)
  Receive Date: 20100729
  Receipt Date: 20080903
  Transmission Date: 20110219
  Serious: Yes (Other)
  Sender: FDA-Public Use
  Company Number: US-PFIZER INC-2008060656

PATIENT
  Sex: Female
  Weight: 59.09 kg

DRUGS (5)
  1. CELEBREX [Suspect]
     Indication: CARPAL TUNNEL DECOMPRESSION
     Route: 048
     Dates: start: 20080510, end: 20080514
  2. CELEBREX [Suspect]
     Indication: RHEUMATOID ARTHRITIS
  3. DILTIAZEM [Concomitant]
  4. DIGITEK [Concomitant]
  5. TOPROL-XL [Concomitant]

REACTIONS (1)
  - CHEST PAIN [None]
